FAERS Safety Report 22100589 (Version 1)
Quarter: 2023Q1

REPORT INFORMATION
  Report Type: Spontaneous
  Country: GB (occurrence: None)
  Receive Date: 20230316
  Receipt Date: 20230316
  Transmission Date: 20230418
  Serious: Yes (Hospitalization, Disabling)
  Sender: FDA-Public Use
  Company Number: 2023A056909

PATIENT
  Age: 54 Year
  Sex: Female
  Weight: 64 kg

DRUGS (4)
  1. OLAPARIB [Suspect]
     Active Substance: OLAPARIB
     Dosage: 300 MG TWO TIMES A DAY
     Dates: start: 20221211, end: 20230301
  2. DOMPERIDONE [Concomitant]
     Active Substance: DOMPERIDONE
  3. HYDROXYCHLOROQUINE [Concomitant]
     Active Substance: HYDROXYCHLOROQUINE
  4. LEVOTHYROXINE [Concomitant]
     Active Substance: LEVOTHYROXINE

REACTIONS (1)
  - Hepatic necrosis [Not Recovered/Not Resolved]

NARRATIVE: CASE EVENT DATE: 20230206
